FAERS Safety Report 10245377 (Version 1)
Quarter: 2014Q2

REPORT INFORMATION
  Report Type: Spontaneous
  Country: CA (occurrence: CA)
  Receive Date: 20140618
  Receipt Date: 20140618
  Transmission Date: 20141212
  Serious: Yes (Death, Other)
  Sender: FDA-Public Use
  Company Number: PHHY2014CA071584

PATIENT
  Age: 39 Year
  Sex: Female

DRUGS (2)
  1. TACROLIMUS [Suspect]
     Indication: IMMUNOSUPPRESSION
     Dosage: 4 MG, UNK
     Route: 048
  2. TACROLIMUS [Suspect]
     Dosage: 5 MG, UNK
     Route: 048

REACTIONS (7)
  - Obliterative bronchiolitis [Fatal]
  - Concomitant disease aggravated [Fatal]
  - Gestational diabetes [Unknown]
  - Pneumonia bacterial [Unknown]
  - Immunosuppressant drug level decreased [Unknown]
  - Blood creatinine decreased [Unknown]
  - Maternal exposure during pregnancy [Unknown]
